FAERS Safety Report 4928509-2 (Version None)
Quarter: 2006Q1

REPORT INFORMATION
  Report Type: 
  Country: None (occurrence: None)
  Receive Date: 20060127
  Receipt Date: 20051215
  Transmission Date: 20060701
  Serious: Yes (Other)
  Sender: FDA-Public Use
  Company Number: 2005150363

PATIENT
  Age: 34 Year
  Sex: Male

DRUGS (5)
  1. LYRICA [Suspect]
     Indication: POST HERPETIC NEURALGIA
     Dosage: 150 MG (75 MG, 2 IN 1D)
     Dates: start: 20050927, end: 20050901
  2. ZOLOFT [Concomitant]
  3. VALTREX [Concomitant]
  4. VICOPROFEN [Concomitant]
  5. DARVOCET [Concomitant]

REACTIONS (1)
  - SOMNOLENCE [None]
